FAERS Safety Report 7066592-1 (Version None)
Quarter: 2010Q4

REPORT INFORMATION
  Report Type: 
  Country: None (occurrence: None)
  Receive Date: 20101027
  Receipt Date: 20100722
  Transmission Date: 20110411
  Serious: No
  Sender: FDA-Public Use
  Company Number: US-WYE-H16669510

PATIENT
  Sex: Female
  Weight: 54.48 kg

DRUGS (1)
  1. PREMPRO [Suspect]
     Indication: MENOPAUSE
     Route: 048
     Dates: start: 20100301

REACTIONS (1)
  - METRORRHAGIA [None]
